FAERS Safety Report 11020582 (Version 1)
Quarter: 2015Q2

REPORT INFORMATION
  Report Type: Spontaneous
  Country: FR (occurrence: FR)
  Receive Date: 20150413
  Receipt Date: 20150413
  Transmission Date: 20150821
  Serious: Yes (Other)
  Sender: FDA-Public Use
  Company Number: FR-009507513-1504FRA004154

PATIENT
  Age: 20 Year
  Sex: Female

DRUGS (1)
  1. DIPROSONE [Suspect]
     Active Substance: BETAMETHASONE DIPROPIONATE
     Dosage: 1 DROP, ONCE
     Route: 047
     Dates: start: 20150304, end: 2015

REACTIONS (3)
  - Wrong drug administered [Unknown]
  - Medication error [Unknown]
  - Eye pain [Unknown]

NARRATIVE: CASE EVENT DATE: 20150304
